FAERS Safety Report 13384505 (Version 1)
Quarter: 2017Q1

REPORT INFORMATION
  Report Type: Spontaneous
  Country: US (occurrence: US)
  Receive Date: 20170329
  Receipt Date: 20170329
  Transmission Date: 20170429
  Serious: Yes (Hospitalization)
  Sender: FDA-Public Use
  Company Number: None

PATIENT
  Age: 67 Year
  Sex: Male

DRUGS (27)
  1. TYLENOL [Concomitant]
     Active Substance: ACETAMINOPHEN
  2. DEXAMETHASON [Concomitant]
     Active Substance: DEXAMETHASONE
  3. LORAZEPAM. [Concomitant]
     Active Substance: LORAZEPAM
  4. METHADONE [Concomitant]
     Active Substance: METHADONE HYDROCHLORIDE
  5. TACROLIMUS 0.5MG CAP [Suspect]
     Active Substance: TACROLIMUS
     Indication: LIVER TRANSPLANT
     Route: 048
     Dates: start: 20160113
  6. HYDROMORPHON [Concomitant]
     Active Substance: HYDROMORPHONE
  7. FEROSUL ELX [Concomitant]
  8. PROVENTIL HFA [Concomitant]
     Active Substance: ALBUTEROL SULFATE
  9. PROCHLORPER [Concomitant]
  10. NASAL RELIEF SPR [Concomitant]
  11. CARBAMAZEPIN [Concomitant]
     Active Substance: CARBAMAZEPINE
  12. LEVOFLOXACIN. [Concomitant]
     Active Substance: LEVOFLOXACIN
  13. LIDOCAINE. [Concomitant]
     Active Substance: LIDOCAINE
  14. CRESTOR [Concomitant]
     Active Substance: ROSUVASTATIN CALCIUM
  15. ONDANSETRON [Concomitant]
     Active Substance: ONDANSETRON
  16. VALGANCICLOV [Concomitant]
  17. VITAMIN B COMPLEX [Concomitant]
     Active Substance: CYANOCOBALAMIN\DEXPANTHENOL\NIACINAMIDE\PYRIDOXINE HYDROCHLORIDE\RIBOFLAVIN 5^-PHOSPHATE SODIUM\THIAMINE HYDROCHLORIDE\VITAMIN B COMPLEX
  18. CLONIDINE. [Concomitant]
     Active Substance: CLONIDINE
  19. MAGNESIUM [Concomitant]
     Active Substance: MAGNESIUM
  20. CHLORHEX GLU SOL [Concomitant]
  21. DOK [Concomitant]
     Active Substance: DOCUSATE SODIUM
  22. ENOXAPARIN [Concomitant]
     Active Substance: ENOXAPARIN
  23. ROSUVASTATIN. [Concomitant]
     Active Substance: ROSUVASTATIN
  24. DOCOLACE [Concomitant]
  25. PREDNISONE. [Concomitant]
     Active Substance: PREDNISONE
  26. FENTANYL. [Concomitant]
     Active Substance: FENTANYL
  27. CARVEDILOL. [Concomitant]
     Active Substance: CARVEDILOL

REACTIONS (3)
  - Blood sodium decreased [None]
  - Feeding disorder [None]
  - Cognitive disorder [None]

NARRATIVE: CASE EVENT DATE: 20170310
